FAERS Safety Report 10423624 (Version 1)
Quarter: 2014Q3

REPORT INFORMATION
  Report Type: Spontaneous
  Country: PL (occurrence: PL)
  Receive Date: 20140902
  Receipt Date: 20140902
  Transmission Date: 20150326
  Serious: Yes (Hospitalization)
  Sender: FDA-Public Use
  Company Number: PL-ABBVIE-14P-129-1276669-00

PATIENT
  Age: 16 Year
  Sex: Female
  Weight: 46 kg

DRUGS (8)
  1. ULTANE [Suspect]
     Active Substance: SEVOFLURANE
     Dosage: 1 VOL %
     Route: 055
  2. FENTANYL. [Concomitant]
     Active Substance: FENTANYL
     Indication: GENERAL ANAESTHESIA
     Route: 042
  3. ATROPINE [Concomitant]
     Active Substance: ATROPINE
     Indication: GENERAL ANAESTHESIA
     Route: 042
  4. RINGER^S SOLUTION [Concomitant]
     Active Substance: RINGER^S SOLUTION
     Indication: PRODUCT USED FOR UNKNOWN INDICATION
  5. PROPOFOL. [Suspect]
     Active Substance: PROPOFOL
     Indication: GENERAL ANAESTHESIA
     Route: 042
  6. ATRACURIUM BESYLATE. [Suspect]
     Active Substance: ATRACURIUM BESYLATE
     Indication: GENERAL ANAESTHESIA
     Route: 042
  7. ULTANE [Suspect]
     Active Substance: SEVOFLURANE
     Indication: ANAESTHESIA
     Dosage: 2 VOL %
     Route: 055
  8. MIDAZOLAM [Concomitant]
     Active Substance: MIDAZOLAM\MIDAZOLAM HYDROCHLORIDE
     Indication: PRODUCT USED FOR UNKNOWN INDICATION
     Route: 048

REACTIONS (1)
  - Hypovolaemic shock [Recovered/Resolved]
